FAERS Safety Report 5406724-1 (Version None)
Quarter: 2007Q3

REPORT INFORMATION
  Report Type: 
  Country: None (occurrence: None)
  Receive Date: 20070802
  Receipt Date: 20070718
  Transmission Date: 20080115
  Serious: No
  Sender: FDA-Public Use
  Company Number: PHBS2007FR11174

PATIENT
  Age: 75 Year
  Sex: Male

DRUGS (2)
  1. VISUDYNE [Suspect]
     Indication: CHOROIDAL NEOVASCULARISATION
  2. ANTIHYPERTENSIVES [Concomitant]

REACTIONS (2)
  - CEREBRAL ISCHAEMIA [None]
  - LOCKED-IN SYNDROME [None]
